FAERS Safety Report 9467895 (Version 1)
Quarter: 2013Q3

REPORT INFORMATION
  Report Type: Spontaneous
  Country: DE (occurrence: DE)
  Receive Date: 20130821
  Receipt Date: 20130821
  Transmission Date: 20140515
  Serious: Yes (Death)
  Sender: FDA-Public Use
  Company Number: PHHY2013DE089926

PATIENT
  Sex: 0

DRUGS (3)
  1. TOBRAMYCIN [Suspect]
     Indication: PNEUMONIA ASPIRATION
  2. LINEZOLID [Concomitant]
     Indication: PNEUMONIA ASPIRATION
  3. MEROPENEM [Concomitant]
     Indication: PNEUMONIA ASPIRATION

REACTIONS (2)
  - Septic shock [Fatal]
  - Shock [Fatal]
